FAERS Safety Report 4930362-8 (Version None)
Quarter: 2006Q1

REPORT INFORMATION
  Report Type: 
  Country: None (occurrence: None)
  Receive Date: 20060302
  Receipt Date: 20060228
  Transmission Date: 20060701
  Serious: Yes (Hospitalization)
  Sender: FDA-Public Use
  Company Number: US-GLAXOSMITHKLINE-A0595536A

PATIENT
  Sex: Male

DRUGS (17)
  1. AVANDIA [Suspect]
     Dosage: 4MG PER DAY
     Route: 048
  2. NITROGLYCERIN SPRAY [Concomitant]
  3. NITROGLYCERIN TABLET [Concomitant]
  4. PROTONIX [Concomitant]
  5. NORVASC [Concomitant]
  6. BENAZEPRIL HCL [Concomitant]
  7. FUROSEMIDE [Concomitant]
  8. DOXAZOSIN [Concomitant]
  9. AMARYL [Concomitant]
  10. ISOSORBIDE MONONITRATE [Concomitant]
  11. PLAVIX [Concomitant]
  12. TOPROL [Concomitant]
  13. LIPITOR [Concomitant]
  14. GLUCOSAMINE [Concomitant]
  15. CALCIUM GLUCONATE [Concomitant]
  16. VITAMIN E [Concomitant]
  17. INSULIN [Concomitant]

REACTIONS (6)
  - ANAEMIA [None]
  - FATIGUE [None]
  - FEELING COLD [None]
  - QUADRUPLE VESSEL BYPASS GRAFT [None]
  - SWELLING [None]
  - WEIGHT INCREASED [None]
